FAERS Safety Report 7381303-8 (Version None)
Quarter: 2011Q1

REPORT INFORMATION
  Report Type: 
  Country: None (occurrence: None)
  Receive Date: 20110329
  Receipt Date: 20110325
  Transmission Date: 20110831
  Serious: Yes (Other)
  Sender: FDA-Public Use
  Company Number: JP-PFIZER INC-2011067305

PATIENT
  Age: 81 Year
  Sex: Male

DRUGS (7)
  1. LIPITOR [Suspect]
     Dosage: 5 MG, DAILY
     Route: 048
     Dates: start: 20110126, end: 20110209
  2. SIGMART [Concomitant]
     Dosage: UNK
     Route: 048
     Dates: start: 20110126, end: 20110209
  3. ALENDRONATE SODIUM [Concomitant]
     Indication: MYALGIA
     Dosage: UNK
     Route: 048
  4. PLAVIX [Concomitant]
     Dosage: UNK
     Route: 048
     Dates: start: 20110126
  5. ACETYLSALICYLIC ACID [Concomitant]
     Dosage: UNK
     Route: 048
     Dates: start: 20110126
  6. GASTER [Concomitant]
     Indication: MYALGIA
     Dosage: 20 MG, UNK
  7. PREDNISOLONE [Concomitant]
     Indication: MYALGIA
     Dosage: UNK
     Route: 048

REACTIONS (2)
  - PERCUTANEOUS CORONARY INTERVENTION [None]
  - FACE OEDEMA [None]
